FAERS Safety Report 6609170-8 (Version None)
Quarter: 2010Q1

REPORT INFORMATION
  Report Type: 
  Country: None (occurrence: None)
  Receive Date: 20100224
  Receipt Date: 20100217
  Transmission Date: 20100710
  Serious: Yes (Hospitalization, Other)
  Sender: FDA-Public Use
  Company Number: ALL1-2010-00861

PATIENT
  Age: 69 Year
  Sex: Female
  Weight: 74.8 kg

DRUGS (15)
  1. FOSRENOL [Suspect]
     Indication: HYPERPHOSPHATAEMIA
     Dosage: 2000 MG, WITH MEALS DAILY, ORAL, 1000 MG, ONE TABLET WITH SNACKS DAILY, ORAL
     Route: 048
     Dates: start: 20070101
  2. FOSRENOL [Suspect]
     Indication: HYPERPHOSPHATAEMIA
     Dosage: 2000 MG, WITH MEALS DAILY, ORAL, 1000 MG, ONE TABLET WITH SNACKS DAILY, ORAL
     Route: 048
     Dates: start: 20070101
  3. LANTUS [Concomitant]
  4. HUMALOG INSULIN (INSULIN LISPRO) SOLUTION FOR INJECTION [Concomitant]
  5. COMBIVENT (IPRATROPIUM BROMIDE, SALBUTAMOL SULFATE) INHALATION GAS [Concomitant]
  6. TESSALON PERLE (BENZONATATE) CAPSULE [Concomitant]
  7. DOXICYCLINE (DOXYCYCLINE) CAPSULE [Concomitant]
  8. IPRATROPIUM (IPRATROPIUM) NASAL SPRAY [Concomitant]
  9. HYDROCODOEN (HYDROCODONE) TABLET [Concomitant]
  10. FLEXERIL (CYCLOBENZAPRINE HYDROCHLORIDE) TABLET [Concomitant]
  11. NITROSTAT (GLYCERYL TRINITRATE) TABLET [Concomitant]
  12. DIALVIT (ASCORBIC ACID, FOLIC ACID, PYRIDOXINE HYDROCHLORIDE, RIBOFLAV [Concomitant]
  13. DIPHENHYDRAMINE (DIPHENHYDRAMINE) TABLET [Concomitant]
  14. ZOLOFT [Concomitant]
  15. ISOSORBIDE (ISOSORBIDE) CAPSULE [Concomitant]

REACTIONS (10)
  - ATRIAL FIBRILLATION [None]
  - BLOOD MAGNESIUM DECREASED [None]
  - BLOOD POTASSIUM DECREASED [None]
  - GASTRIC ULCER [None]
  - ILEOSTOMY [None]
  - NAUSEA [None]
  - RESTLESS LEGS SYNDROME [None]
  - RETCHING [None]
  - SKIN DISORDER [None]
  - VOMITING [None]
